FAERS Safety Report 4782867-0 (Version None)
Quarter: 2005Q3

REPORT INFORMATION
  Report Type: 
  Country: None (occurrence: None)
  Receive Date: 20050927
  Receipt Date: 20050914
  Transmission Date: 20060218
  Serious: Yes (Death, Other)
  Sender: FDA-Public Use
  Company Number: 2005129256

PATIENT
  Age: 47 Year
  Sex: Male

DRUGS (1)
  1. CELEBREX [Suspect]
     Indication: BACK PAIN
     Dosage: (200MG), ORAL
     Route: 048
     Dates: start: 20050909, end: 20050901

REACTIONS (2)
  - ATHEROSCLEROSIS [None]
  - MYOCARDIAL INFARCTION [None]
